FAERS Safety Report 7355500-1 (Version None)
Quarter: 2011Q1

REPORT INFORMATION
  Report Type: 
  Country: None (occurrence: None)
  Receive Date: 20110316
  Receipt Date: 20110309
  Transmission Date: 20110831
  Serious: Yes (Hospitalization)
  Sender: FDA-Public Use
  Company Number: A0904115A

PATIENT
  Age: 25 Year
  Sex: Female

DRUGS (20)
  1. KEPPRA [Concomitant]
  2. PHENERGAN [Concomitant]
  3. VANCOMYCIN [Concomitant]
  4. CLONAZEPAM [Concomitant]
  5. LAMOTRIGINE [Suspect]
     Dosage: 50MG TWICE PER DAY
     Route: 048
     Dates: start: 20101220
  6. PEPCID [Concomitant]
  7. EYE DROPS [Concomitant]
  8. VIMPAT [Concomitant]
  9. MAGNESIUM OXIDE [Concomitant]
  10. DILAUDID [Concomitant]
  11. SYNTHROID [Concomitant]
  12. ACETAMINOPHEN [Concomitant]
  13. MORPHINE SULDATE [Concomitant]
  14. UNSPECIFIED MEDICATION [Concomitant]
  15. SEROQUEL [Concomitant]
  16. COLACE [Concomitant]
  17. POLYVINYL ALCOHOL [Concomitant]
  18. VALIUM [Concomitant]
  19. ATIVAN [Concomitant]
  20. LACTOBACILLUS [Concomitant]

REACTIONS (3)
  - ALOPECIA [None]
  - HYPOTENSION [None]
  - ABNORMAL BEHAVIOUR [None]
